FAERS Safety Report 10082269 (Version 5)
Quarter: 2016Q1

REPORT INFORMATION
  Report Type: Spontaneous
  Country: US (occurrence: US)
  Receive Date: 20140416
  Receipt Date: 20160219
  Transmission Date: 20160525
  Serious: Yes (Other)
  Sender: FDA-Public Use
  Company Number: US-009507513-1403USA010349

PATIENT
  Age: 22 Year
  Sex: Female
  Weight: 58.5 kg

DRUGS (2)
  1. NEXPLANON [Suspect]
     Active Substance: ETONOGESTREL
     Indication: CONTRACEPTION
     Dosage: 1 ROD, EVERY 3 YEARS
     Route: 059
     Dates: start: 20131107
  2. KEFLEX [Concomitant]
     Active Substance: CEPHALEXIN
     Dosage: UNK

REACTIONS (10)
  - Device dislocation [Recovered/Resolved]
  - Surgery [Recovered/Resolved]
  - Mood altered [Recovered/Resolved]
  - Device difficult to use [Recovered/Resolved]
  - Suicidal ideation [Recovered/Resolved]
  - Menstruation irregular [Recovered/Resolved]
  - Incorrect route of drug administration [Unknown]
  - Self-injurious ideation [Recovered/Resolved]
  - Menstruation normal [Recovered/Resolved]
  - Complication associated with device [Recovered/Resolved]

NARRATIVE: CASE EVENT DATE: 20140313
